FAERS Safety Report 8105331-X (Version None)
Quarter: 2012Q1

REPORT INFORMATION
  Report Type: 
  Country: None (occurrence: None)
  Receive Date: 20120201
  Receipt Date: 20120124
  Transmission Date: 20120608
  Serious: Yes (Hospitalization, Other)
  Sender: FDA-Public Use
  Company Number: PHHY2011AU109243

PATIENT
  Sex: Female

DRUGS (8)
  1. GILENYA [Suspect]
     Indication: MULTIPLE SCLEROSIS
     Dosage: 0.5 MG, DAILY
     Route: 048
     Dates: start: 20110502
  2. IRBESARTAN + HYDROCHLOROTHIAZIDE [Concomitant]
     Dosage: UNK
     Dates: start: 20111101
  3. PANTOPRAZOLE [Concomitant]
  4. CHOLECALCIFEROL [Concomitant]
  5. KARVEA [Concomitant]
     Dosage: 300 MG, UNK
     Dates: start: 20110801
  6. ACETAMINOPHEN [Concomitant]
  7. RAMIPRIL [Concomitant]
     Indication: HYPERTENSION
     Dosage: 2.5 MG, DAILY
     Dates: start: 20110530
  8. RAMIPRIL [Concomitant]
     Dosage: 5 MG, DAILY

REACTIONS (15)
  - FALL [None]
  - SUBDURAL HAEMATOMA [None]
  - CONVULSION [None]
  - BLOOD PRESSURE INCREASED [None]
  - ECZEMA EYELIDS [None]
  - BLOOD PRESSURE DECREASED [None]
  - BACK PAIN [None]
  - MALAISE [None]
  - HEADACHE [None]
  - CONJUNCTIVITIS [None]
  - DIZZINESS [None]
  - DYSPNOEA [None]
  - INFLUENZA [None]
  - HAEMORRHAGE [None]
  - CONTUSION [None]
